FAERS Safety Report 10558123 (Version 3)
Quarter: 2015Q4

REPORT INFORMATION
  Report Type: Report from Study
  Country: US (occurrence: US)
  Receive Date: 20141031
  Receipt Date: 20151111
  Transmission Date: 20160304
  Serious: No
  Sender: FDA-Public Use
  Company Number: US-GLAXOSMITHKLINE-B0961550A

PATIENT
  Age: 40 Year
  Sex: Female

DRUGS (2)
  1. FLUTICASONE PROPIONATE INHALATION POWDER [Suspect]
     Active Substance: FLUTICASONE PROPIONATE
     Indication: ASTHMA
     Dosage: 100 UG, BID
     Dates: start: 20130610, end: 20131209
  2. DEPO-PROVERA [Concomitant]
     Active Substance: MEDROXYPROGESTERONE ACETATE
     Indication: CONTRACEPTION
     Route: 030
     Dates: start: 20130505, end: 201309

REACTIONS (1)
  - Exposure during pregnancy [Unknown]
